FAERS Safety Report 8225709-3 (Version None)
Quarter: 2012Q1

REPORT INFORMATION
  Report Type: 
  Country: None (occurrence: None)
  Receive Date: 20120321
  Receipt Date: 20120307
  Transmission Date: 20120608
  Serious: Yes (Death)
  Sender: FDA-Public Use
  Company Number: FR-CELGENEUS-056-21880-12030932

PATIENT
  Sex: Female
  Weight: 71 kg

DRUGS (11)
  1. CYTARABINE [Suspect]
     Route: 041
     Dates: start: 20120209, end: 20120215
  2. DAUNORUBICIN HCL [Suspect]
     Route: 065
     Dates: start: 20120209, end: 20120211
  3. CASPOFUNGINE [Concomitant]
     Route: 065
     Dates: start: 20120228
  4. REVLIMID [Suspect]
     Route: 048
     Dates: start: 20120209, end: 20120228
  5. CYTARABINE [Suspect]
  6. IMIPENEM AND CILASTATIN SODIUM [Concomitant]
     Route: 065
     Dates: start: 20120216
  7. DAUNORUBICIN HCL [Suspect]
  8. ATARAX [Concomitant]
     Route: 065
     Dates: start: 20120223
  9. SOTALOL HCL [Concomitant]
     Route: 065
     Dates: start: 20120209
  10. DEXAMETHASONE [Concomitant]
     Route: 065
     Dates: start: 20120301, end: 20120303
  11. REVLIMID [Suspect]

REACTIONS (2)
  - HISTIOCYTOSIS HAEMATOPHAGIC [None]
  - HEPATITIS FULMINANT [None]
